FAERS Safety Report 19456702 (Version 1)
Quarter: 2021Q2

REPORT INFORMATION
  Report Type: Spontaneous
  Country: DK (occurrence: DK)
  Receive Date: 20210624
  Receipt Date: 20210624
  Transmission Date: 20210717
  Serious: Yes (Hospitalization, Other)
  Sender: FDA-Public Use
  Company Number: DK-UNICHEM PHARMACEUTICALS (USA) INC-UCM202106-000562

PATIENT
  Age: 53 Year
  Sex: Male

DRUGS (6)
  1. CLOZAPINE. [Suspect]
     Active Substance: CLOZAPINE
  2. DIVALPROEX SODIUM. [Suspect]
     Active Substance: DIVALPROEX SODIUM
     Indication: ANXIETY
     Dosage: INCREASED FROM 300 TO 900 MG PER DAY
  3. DIVALPROEX SODIUM. [Suspect]
     Active Substance: DIVALPROEX SODIUM
     Indication: NEGATIVE THOUGHTS
  4. CLOZAPINE. [Suspect]
     Active Substance: CLOZAPINE
     Indication: SCHIZOPHRENIA
     Dosage: INCREASED FROM 12.5 TO 550 MG PER DAY
  5. CLOZAPINE. [Suspect]
     Active Substance: CLOZAPINE
  6. CLOZAPINE. [Suspect]
     Active Substance: CLOZAPINE

REACTIONS (2)
  - Drug interaction [Unknown]
  - Neutropenia [Recovering/Resolving]
